FAERS Safety Report 16449631 (Version 1)
Quarter: 2019Q2

REPORT INFORMATION
  Report Type: Spontaneous
  Country: US (occurrence: US)
  Receive Date: 20190509
  Receipt Date: 20190509
  Transmission Date: 20190711
  Serious: No
  Sender: FDA-Public Use
  Company Number: None

PATIENT
  Age: 69 Year
  Sex: Female

DRUGS (1)
  1. IBRANCE [Suspect]
     Active Substance: PALBOCICLIB
     Dates: start: 20181117

REACTIONS (3)
  - Pyrexia [None]
  - Alopecia [None]
  - White blood cell count decreased [None]

NARRATIVE: CASE EVENT DATE: 20190509
